FAERS Safety Report 7572148-4 (Version None)
Quarter: 2011Q2

REPORT INFORMATION
  Report Type: 
  Country: None (occurrence: None)
  Receive Date: 20110624
  Receipt Date: 20110617
  Transmission Date: 20111010
  Serious: Yes (Death, Life-Threatening, Hospitalization)
  Sender: FDA-Public Use
  Company Number: PL-AMGEN-POLCT2011018573

PATIENT
  Age: 77 Year
  Sex: Male
  Weight: 63 kg

DRUGS (9)
  1. MAGNESIUM [Concomitant]
     Indication: HYPOMAGNESAEMIA
     Dosage: UNK
     Route: 048
     Dates: start: 20101221, end: 20110402
  2. MAGNESIUM [Concomitant]
     Route: 042
     Dates: start: 20110201, end: 20110201
  3. CETIRIZINE HCL [Concomitant]
     Dosage: UNK
     Route: 048
     Dates: start: 20110104, end: 20110201
  4. PANITUMUMAB [Suspect]
     Indication: COLORECTAL CANCER METASTATIC
     Dates: start: 20100831, end: 20110328
  5. FUROSEMIDE [Concomitant]
     Indication: RENAL FAILURE
  6. MAGNESIUM [Concomitant]
     Route: 042
     Dates: start: 20110117, end: 20110117
  7. CALCIUM CARBONATE [Concomitant]
     Indication: HYPOCALCAEMIA
     Dosage: UNK
     Route: 048
     Dates: start: 20101220, end: 20110201
  8. MAGNESIUM [Concomitant]
     Route: 042
     Dates: start: 20110329, end: 20110402
  9. FUROSEMIDE [Concomitant]
     Indication: BLOOD CREATININE INCREASED
     Dosage: UNK UNK, UNK
     Route: 048
     Dates: start: 20101221, end: 20110402

REACTIONS (2)
  - MESENTERIC VEIN THROMBOSIS [None]
  - COLON CANCER METASTATIC [None]
